FAERS Safety Report 4593557-1 (Version None)
Quarter: 2005Q1

REPORT INFORMATION
  Report Type: 
  Country: None (occurrence: None)
  Receive Date: 20050224
  Receipt Date: 20040901
  Transmission Date: 20050727
  Serious: No
  Sender: FDA-Public Use
  Company Number: US-BRISTOL-MYERS SQUIBB COMPANY-12691606

PATIENT
  Age: 78 Year
  Sex: Female

DRUGS (2)
  1. EXCEDRIN (MIGRAINE) [Suspect]
     Indication: PAIN
     Dosage: 1 TABLET PER DAY, ALMOST EVERYDAY, FOR ^ABOUT 1 WEEK^
     Route: 048
     Dates: start: 20040801
  2. EXCEDRIN (MIGRAINE) [Suspect]
     Indication: MUSCULOSKELETAL STIFFNESS
     Dosage: 1 TABLET PER DAY, ALMOST EVERYDAY, FOR ^ABOUT 1 WEEK^
     Route: 048
     Dates: start: 20040801

REACTIONS (2)
  - ABDOMINAL PAIN UPPER [None]
  - DYSPEPSIA [None]
